FAERS Safety Report 10261769 (Version 1)
Quarter: 2014Q2

REPORT INFORMATION
  Report Type: Spontaneous
  Country: US (occurrence: None)
  Receive Date: 20140624
  Receipt Date: 20140624
  Transmission Date: 20141212
  Serious: Yes (Hospitalization)
  Sender: FDA-Public Use
  Company Number: None

PATIENT
  Age: 56 Year
  Sex: Male

DRUGS (1)
  1. HALOPERIDOL [Suspect]
     Indication: BIPOLAR I DISORDER
     Route: 030
     Dates: start: 20140515, end: 20140521

REACTIONS (1)
  - Neuroleptic malignant syndrome [None]
